FAERS Safety Report 5832431-7 (Version None)
Quarter: 2008Q3

REPORT INFORMATION
  Report Type: 
  Country: None (occurrence: None)
  Receive Date: 20080730
  Receipt Date: 20080721
  Transmission Date: 20090109
  Serious: Yes (Death)
  Sender: FDA-Public Use
  Company Number: GXKR2008DE06864

PATIENT
  Age: 53 Year
  Sex: Male

DRUGS (4)
  1. METHOTREXATE [Suspect]
     Indication: RHEUMATOID ARTHRITIS
     Dosage: 20 MG, QW, SUBCUTANEOUS
     Route: 058
  2. PREDNISOLONE [Suspect]
     Indication: RHEUMATOID ARTHRITIS
     Dosage: 5-7.5 MG/DAY, UNKNOWN
  3. RITUXIMAB (RITUXIMAB) UNKNOWN [Suspect]
     Indication: RHEUMATOID ARTHRITIS
     Dosage: 1000 MG, DAYS 1 AND 15, INTRAVENOUS
     Route: 042
  4. LEFLUNOMIDE [Concomitant]

REACTIONS (9)
  - ACINETOBACTER INFECTION [None]
  - BRONCHOALVEOLAR LAVAGE ABNORMAL [None]
  - DIZZINESS [None]
  - HERPES SIMPLEX DNA TEST POSITIVE [None]
  - MULTI-ORGAN FAILURE [None]
  - OROPHARYNGEAL CANDIDIASIS [None]
  - PNEUMOCYSTIS JIROVECI PNEUMONIA [None]
  - RESPIRATORY FAILURE [None]
  - SEPSIS [None]
